FAERS Safety Report 5959351-1 (Version None)
Quarter: 2008Q4

REPORT INFORMATION
  Report Type: 
  Country: None (occurrence: None)
  Receive Date: 20081119
  Receipt Date: 20081119
  Transmission Date: 20090506
  Serious: No
  Sender: FDA-Public Use
  Company Number: None

PATIENT
  Age: 42 Year
  Sex: Female
  Weight: 54.4316 kg

DRUGS (1)
  1. MIRENA [Suspect]

REACTIONS (6)
  - AFFECTIVE DISORDER [None]
  - BACK PAIN [None]
  - MENOPAUSE [None]
  - MENTAL DISORDER [None]
  - NIGHT SWEATS [None]
  - WEIGHT INCREASED [None]
